FAERS Safety Report 24072720 (Version 1)
Quarter: 2024Q3

REPORT INFORMATION
  Report Type: Report from Study
  Country: AR (occurrence: AR)
  Receive Date: 20240710
  Receipt Date: 20240710
  Transmission Date: 20241016
  Serious: Yes (Hospitalization, Other)
  Sender: JOHNSON AND JOHNSON
  Company Number: AR-JNJFOC-20240705621

PATIENT
  Age: 65 Year
  Sex: Male
  Weight: 82 kg

DRUGS (1)
  1. SIMPONI [Suspect]
     Active Substance: GOLIMUMAB
     Indication: Rheumatoid arthritis
     Route: 058
     Dates: start: 20200124

REACTIONS (3)
  - Intestinal perforation [Recovering/Resolving]
  - Peritonitis [Recovering/Resolving]
  - Pyrexia [Recovering/Resolving]
